FAERS Safety Report 18658748 (Version 1)
Quarter: 2020Q4

REPORT INFORMATION
  Report Type: Spontaneous
  Country: US (occurrence: US)
  Receive Date: 20201223
  Receipt Date: 20201223
  Transmission Date: 20210114
  Serious: No
  Sender: FDA-Public Use
  Company Number: US-TAKEDA-2020TUS057763

PATIENT
  Sex: Male
  Weight: 54 kg

DRUGS (1)
  1. VYVANSE [Suspect]
     Active Substance: LISDEXAMFETAMINE DIMESYLATE
     Indication: ATTENTION DEFICIT HYPERACTIVITY DISORDER
     Dosage: 30 MILLIGRAM,UNKNOWN FREQUENCY
     Route: 065
     Dates: start: 20201105

REACTIONS (3)
  - Drug ineffective [Unknown]
  - Insomnia [Unknown]
  - Inappropriate schedule of product administration [Unknown]
